FAERS Safety Report 9176574 (Version 2)
Quarter: 2013Q1

REPORT INFORMATION
  Report Type: Spontaneous
  Country: DE (occurrence: DE)
  Receive Date: 20130321
  Receipt Date: 20130326
  Transmission Date: 20140127
  Serious: Yes (Other)
  Sender: FDA-Public Use
  Company Number: DE-JNJFOC-20130308528

PATIENT
  Age: 76 Year
  Sex: Female
  Weight: 95 kg

DRUGS (5)
  1. XARELTO [Suspect]
     Indication: KNEE ARTHROPLASTY
     Route: 048
     Dates: start: 20130131, end: 20130307
  2. XARELTO [Suspect]
     Indication: THROMBOSIS PROPHYLAXIS
     Route: 048
     Dates: start: 20130131, end: 20130307
  3. LOSARTAN [Concomitant]
     Route: 065
  4. HCT [Concomitant]
     Route: 065
  5. NOVAMINSULFON [Concomitant]
     Route: 065

REACTIONS (1)
  - Venous thrombosis limb [Unknown]
